FAERS Safety Report 4539695-0 (Version None)
Quarter: 2004Q4

REPORT INFORMATION
  Report Type: 
  Country: None (occurrence: None)
  Receive Date: 20041228
  Receipt Date: 20020219
  Transmission Date: 20050328
  Serious: Yes (Hospitalization)
  Sender: FDA-Public Use
  Company Number: FR-MERCK-0412USA02719

PATIENT
  Age: 84 Year
  Sex: Female

DRUGS (7)
  1. MODURETIC 5-50 [Suspect]
     Route: 048
  2. ASCORBIC ACID AND ASPIRIN [Suspect]
     Route: 048
  3. ATENOLOL [Suspect]
     Route: 048
  4. NICERGOLINE [Suspect]
     Route: 048
  5. SERTRALINE HYDROCHLORIDE [Suspect]
     Route: 048
     Dates: start: 20020111, end: 20020125
  6. DIFFU-K [Concomitant]
     Route: 065
  7. GAVISCON LIQUID ANTACID [Concomitant]
     Route: 065

REACTIONS (6)
  - ASTHENIA [None]
  - DISORIENTATION [None]
  - FALL [None]
  - HYPOKALAEMIA [None]
  - HYPONATRAEMIA [None]
  - RENAL FAILURE [None]
